FAERS Safety Report 10192249 (Version 1)
Quarter: 2014Q2

REPORT INFORMATION
  Report Type: Spontaneous
  Country: JP (occurrence: None)
  Receive Date: 20140521
  Receipt Date: 20140521
  Transmission Date: 20141212
  Serious: Yes (Hospitalization, Other)
  Sender: FDA-Public Use
  Company Number: 2014050053

PATIENT
  Age: 48 Year
  Sex: Female

DRUGS (1)
  1. MESALAZINE [Suspect]
     Indication: COLITIS ULCERATIVE
     Route: 054

REACTIONS (2)
  - Rectal perforation [None]
  - Wrong technique in drug usage process [None]
